FAERS Safety Report 24674896 (Version 2)
Quarter: 2024Q4

REPORT INFORMATION
  Report Type: Spontaneous
  Country: US (occurrence: US)
  Receive Date: 20241128
  Receipt Date: 20241128
  Transmission Date: 20250115
  Serious: Yes (Other)
  Sender: ROCHE
  Company Number: US-ROCHE-10000140240

PATIENT
  Age: 71 Year
  Sex: Female

DRUGS (6)
  1. MYCOPHENOLATE MOFETIL [Suspect]
     Active Substance: MYCOPHENOLATE MOFETIL
     Indication: Immunosuppression
     Route: 065
  2. CHOLECALCIFEROL [Concomitant]
     Active Substance: CHOLECALCIFEROL
  3. LATANOPROST [Concomitant]
     Active Substance: LATANOPROST
  4. HYDROCHLOROTHIAZIDE [Concomitant]
     Active Substance: HYDROCHLOROTHIAZIDE
  5. polysaccharide [Concomitant]
  6. Amoxicillin?clavulanate [Concomitant]

REACTIONS (3)
  - Disease progression [Recovering/Resolving]
  - Brain abscess [Recovering/Resolving]
  - Listeriosis [Recovering/Resolving]
